FAERS Safety Report 7391974-8 (Version None)
Quarter: 2011Q2

REPORT INFORMATION
  Report Type: 
  Country: None (occurrence: None)
  Receive Date: 20110404
  Receipt Date: 20110321
  Transmission Date: 20111010
  Serious: Yes (Death, Hospitalization)
  Sender: FDA-Public Use
  Company Number: US-WATSON-2011-03671

PATIENT
  Sex: Female
  Weight: 55.329 kg

DRUGS (4)
  1. SIMVASTATIN [Concomitant]
     Indication: BLOOD CHOLESTEROL
     Dosage: 10 MG, QHS
     Route: 048
     Dates: start: 20070101, end: 20110312
  2. RIVASTIGMINE TARTRATE [Suspect]
     Indication: DEMENTIA
     Dosage: ONLY ONE DOSE TAKEN IN MORNING
     Route: 048
     Dates: start: 20110313, end: 20110313
  3. BLOOD PRESSURE MEDICATION [Concomitant]
     Indication: BLOOD PRESSURE
     Dosage: UNK
     Route: 048
     Dates: end: 20110301
  4. DONEPEZIL HCL [Concomitant]
     Indication: DEMENTIA
     Dosage: 10 MG, QAM
     Route: 048
     Dates: start: 20070101, end: 20110301

REACTIONS (15)
  - CEREBRAL HAEMORRHAGE [None]
  - VOMITING [None]
  - MUSCULAR WEAKNESS [None]
  - TREMOR [None]
  - BLOOD PRESSURE DECREASED [None]
  - DISORIENTATION [None]
  - HYPERTENSIVE CRISIS [None]
  - LOSS OF CONSCIOUSNESS [None]
  - UNRESPONSIVE TO STIMULI [None]
  - COMA [None]
  - MYOCARDIAL INFARCTION [None]
  - BALANCE DISORDER [None]
  - MALAISE [None]
  - FEELING ABNORMAL [None]
  - RESPIRATORY RATE INCREASED [None]
